FAERS Safety Report 9399146 (Version 2)
Quarter: 2013Q4

REPORT INFORMATION
  Report Type: Spontaneous
  Country: DE (occurrence: DE)
  Receive Date: 20130715
  Receipt Date: 20131105
  Transmission Date: 20140711
  Serious: Yes (Death, Other)
  Sender: FDA-Public Use
  Company Number: DE-009507513-1307DEU004183

PATIENT
  Age: 54 Year
  Sex: Male
  Weight: 55 kg

DRUGS (8)
  1. CANCIDAS [Suspect]
     Indication: CANDIDA INFECTION
     Dosage: 1X50 MG, DAILY
     Route: 042
     Dates: start: 20130517, end: 20130616
  2. MERONEM [Concomitant]
     Indication: PNEUMONIA
     Dosage: 3X1 G
     Route: 042
     Dates: start: 20130521, end: 20130616
  3. PANTOPRAZOLE [Concomitant]
     Indication: DUODENAL ULCER
     Dosage: 1X40 MG
     Route: 042
     Dates: start: 20130503, end: 20130617
  4. AMIODARONE [Concomitant]
     Indication: ATRIAL FIBRILLATION
     Dosage: 1050/ 24 H
     Route: 042
     Dates: start: 20130613, end: 20130620
  5. BELOC-ZOK [Concomitant]
     Indication: ATRIAL FIBRILLATION
     Dosage: 1 DF, QD
     Route: 048
     Dates: start: 20130604, end: 20130620
  6. LYRICA [Concomitant]
     Dosage: UNK
     Dates: start: 20130611, end: 20130616
  7. DUROGESIC [Concomitant]
  8. TAZOBAC [Concomitant]
     Dosage: UNK
     Dates: start: 201305, end: 20130521

REACTIONS (13)
  - Agranulocytosis [Fatal]
  - Renal failure acute [Unknown]
  - Haemodialysis [Unknown]
  - Hyperkalaemia [Recovered/Resolved]
  - Hypotension [Unknown]
  - Bradycardia [Unknown]
  - Resuscitation [Unknown]
  - Tracheostomy [Unknown]
  - Septic shock [Fatal]
  - Multi-organ failure [Fatal]
  - Candida infection [Not Recovered/Not Resolved]
  - Candida sepsis [Fatal]
  - Malnutrition [Fatal]
